FAERS Safety Report 9176521 (Version 1)
Quarter: 2013Q1

REPORT INFORMATION
  Report Type: Spontaneous
  Country: US (occurrence: None)
  Receive Date: 20130320
  Receipt Date: 20130320
  Transmission Date: 20140127
  Serious: Yes (Other)
  Sender: FDA-Public Use
  Company Number: None

PATIENT
  Sex: Male

DRUGS (1)
  1. ZELBORAF 240MG [Suspect]
     Route: 048
     Dates: start: 20130219

REACTIONS (1)
  - Vomiting [None]
